FAERS Safety Report 16316593 (Version 3)
Quarter: 2019Q3

REPORT INFORMATION
  Report Type: Spontaneous
  Country: US (occurrence: US)
  Receive Date: 20190515
  Receipt Date: 20190717
  Transmission Date: 20191004
  Serious: Yes (Other)
  Sender: FDA-Public Use
  Company Number: US-009507513-1905USA003950

PATIENT
  Age: 26 Year
  Sex: Female
  Weight: 53.97 kg

DRUGS (4)
  1. DICYCLOMINE HYDROCHLORIDE. [Concomitant]
     Active Substance: DICYCLOMINE HYDROCHLORIDE
     Indication: IRRITABLE BOWEL SYNDROME
     Route: 048
  2. NEXPLANON [Suspect]
     Active Substance: ETONOGESTREL
     Indication: CONTRACEPTION
     Dosage: 1 IMPLANT 68 MILLGRAM, FOR 3 YEARS
     Route: 059
     Dates: start: 20180508
  3. ZYRTEC [Concomitant]
     Active Substance: CETIRIZINE HYDROCHLORIDE
     Indication: HYPERSENSITIVITY
     Dosage: 10 MILLIGRAM, QD
     Route: 048
  4. NEXPLANON [Suspect]
     Active Substance: ETONOGESTREL
     Dosage: 1 IMPLANT  68 MG, FOR 3 YEARS
     Route: 059
     Dates: start: 20150406, end: 20180508

REACTIONS (4)
  - Optic neuritis [Not Recovered/Not Resolved]
  - Retinal vein thrombosis [Not Recovered/Not Resolved]
  - Papilloedema [Not Recovered/Not Resolved]
  - Incorrect product administration duration [Unknown]

NARRATIVE: CASE EVENT DATE: 20180407
